FAERS Safety Report 15009268 (Version 1)
Quarter: 2018Q2

REPORT INFORMATION
  Report Type: Spontaneous
  Country: US (occurrence: US)
  Receive Date: 20180614
  Receipt Date: 20180614
  Transmission Date: 20180711
  Serious: Yes (Hospitalization)
  Sender: FDA-Public Use
  Company Number: US-BEH-2018091478

PATIENT
  Age: 62 Year
  Sex: Female
  Weight: 107.3 kg

DRUGS (20)
  1. IVABRADINE [Concomitant]
     Active Substance: IVABRADINE
  2. ZYRTEC [Concomitant]
     Active Substance: CETIRIZINE HYDROCHLORIDE
  3. FLUTICASONE FUROATE [Concomitant]
     Active Substance: FLUTICASONE FUROATE
  4. SERTRALINE [Concomitant]
     Active Substance: SERTRALINE HYDROCHLORIDE
  5. FLONASE [Concomitant]
     Active Substance: FLUTICASONE PROPIONATE
  6. BACTRIM [Concomitant]
     Active Substance: SULFAMETHOXAZOLE\TRIMETHOPRIM
  7. XOLAIR [Concomitant]
     Active Substance: OMALIZUMAB
  8. MUCINEX [Concomitant]
     Active Substance: GUAIFENESIN
  9. HIZENTRA [Suspect]
     Active Substance: HUMAN IMMUNOGLOBULIN G
     Indication: IMMUNODEFICIENCY COMMON VARIABLE
     Dosage: 10 G, QW
     Route: 058
     Dates: start: 20131105
  10. HIZENTRA [Suspect]
     Active Substance: HUMAN IMMUNOGLOBULIN G
     Dosage: UNK
     Route: 058
  11. PREDNISONE. [Concomitant]
     Active Substance: PREDNISONE
  12. NAPROXEN. [Concomitant]
     Active Substance: NAPROXEN
  13. SINGULAIR [Concomitant]
     Active Substance: MONTELUKAST SODIUM
  14. DIOVAN [Concomitant]
     Active Substance: VALSARTAN
  15. CORTISONE [Concomitant]
     Active Substance: CORTISONE\HYDROCORTISONE
  16. VALSARTAN. [Concomitant]
     Active Substance: VALSARTAN
  17. SPIRONOLACTONE. [Concomitant]
     Active Substance: SPIRONOLACTONE
  18. DELSYM [Concomitant]
     Active Substance: DEXTROMETHORPHAN
  19. IBUPROFEN. [Concomitant]
     Active Substance: IBUPROFEN
  20. COREG [Concomitant]
     Active Substance: CARVEDILOL

REACTIONS (2)
  - Myocardial infarction [Unknown]
  - Stress [Unknown]

NARRATIVE: CASE EVENT DATE: 20180503
